FAERS Safety Report 23513055 (Version 1)
Quarter: 2024Q1

REPORT INFORMATION
  Report Type: Spontaneous
  Country: CN (occurrence: CN)
  Receive Date: 20240212
  Receipt Date: 20240212
  Transmission Date: 20240410
  Serious: Yes (Life-Threatening, Hospitalization, Other)
  Sender: FDA-Public Use
  Company Number: CN-PFIZER INC-202400036342

PATIENT
  Age: 77 Year
  Sex: Female

DRUGS (4)
  1. PIPERACILLIN SODIUM\TAZOBACTAM SODIUM [Suspect]
     Active Substance: PIPERACILLIN SODIUM\TAZOBACTAM SODIUM
     Indication: Pneumonia chlamydial
     Dosage: UNK
     Dates: start: 20221014, end: 202210
  2. DOXYCYCLINE [Suspect]
     Active Substance: DOXYCYCLINE
     Indication: Pneumonia chlamydial
     Dosage: UNK
     Dates: start: 20221014, end: 202210
  3. DOXYCYCLINE [Suspect]
     Active Substance: DOXYCYCLINE
     Dosage: 0.1 G, 2X/DAY (EVERY 12 HR)
     Route: 048
     Dates: start: 20221031
  4. NIMODIPINE [Concomitant]
     Active Substance: NIMODIPINE
     Indication: Cerebral vasoconstriction
     Dosage: UNK
     Dates: start: 20221012

REACTIONS (2)
  - Acute respiratory distress syndrome [Recovered/Resolved]
  - Impaired gastric emptying [Unknown]

NARRATIVE: CASE EVENT DATE: 20221014
